FAERS Safety Report 9840191 (Version 1)
Quarter: 2014Q1

REPORT INFORMATION
  Report Type: Spontaneous
  Country: JP (occurrence: JP)
  Receive Date: 20140124
  Receipt Date: 20140124
  Transmission Date: 20141002
  Serious: Yes (Other)
  Sender: FDA-Public Use
  Company Number: JP-ACCORD-021489

PATIENT
  Age: 59 Year
  Sex: Male

DRUGS (2)
  1. IRINOTECAN [Suspect]
     Indication: GASTRIC CANCER
  2. TEGAFUR/ GIMERACIL/ OTERACIL POTASSIUM [Suspect]
     Indication: GASTRIC CANCER

REACTIONS (2)
  - Trousseau^s syndrome [Recovered/Resolved]
  - Cerebral infarction [None]
